FAERS Safety Report 9727788 (Version 2)
Quarter: 2013Q4

REPORT INFORMATION
  Report Type: Spontaneous
  Country: IT (occurrence: IT)
  Receive Date: 20131204
  Receipt Date: 20131204
  Transmission Date: 20140711
  Serious: Yes (Other)
  Sender: FDA-Public Use
  Company Number: IT-JNJFOC-20131107605

PATIENT
  Age: 43 Year
  Sex: Male

DRUGS (1)
  1. IBUPROFEN (UNSPECIFIED) [Suspect]
     Indication: INFLUENZA
     Route: 048
     Dates: start: 20131015, end: 20131020

REACTIONS (4)
  - Blood creatine phosphokinase increased [Recovering/Resolving]
  - Thrombocytopenia [Recovering/Resolving]
  - Rash generalised [Recovering/Resolving]
  - Pyrexia [Recovering/Resolving]
